FAERS Safety Report 4372966-X (Version None)
Quarter: 2004Q2

REPORT INFORMATION
  Report Type: 
  Country: None (occurrence: None)
  Receive Date: 20040526
  Receipt Date: 20040516
  Transmission Date: 20050107
  Serious: Yes (Life-Threatening, Hospitalization)
  Sender: FDA-Public Use
  Company Number: 2004200371US

PATIENT
  Age: 64 Year
  Sex: Male
  Weight: 94.3 kg

DRUGS (1)
  1. BEXTRA [Suspect]
     Indication: BURSITIS
     Dosage: 10 MG, QD, ORAL
     Route: 048
     Dates: start: 20040210, end: 20040218

REACTIONS (17)
  - ABSCESS [None]
  - ANAEMIA [None]
  - CHILLS [None]
  - DEHYDRATION [None]
  - DERMATITIS EXFOLIATIVE [None]
  - DISORIENTATION [None]
  - DRUG TOXICITY [None]
  - FOLATE DEFICIENCY [None]
  - HALLUCINATION [None]
  - HYPERAESTHESIA [None]
  - IMMUNE SYSTEM DISORDER [None]
  - JAUNDICE [None]
  - LIVER DISORDER [None]
  - MUSCULOSKELETAL DISORDER [None]
  - OEDEMA PERIPHERAL [None]
  - RENAL FAILURE ACUTE [None]
  - STEVENS-JOHNSON SYNDROME [None]
